FAERS Safety Report 5212391-2 (Version None)
Quarter: 2006Q4

REPORT INFORMATION
  Report Type: 
  Country: None (occurrence: None)
  Receive Date: 20061130
  Receipt Date: 20060523
  Transmission Date: 20070319
  Serious: Yes (Other)
  Sender: FDA-Public Use
  Company Number: WAES 0605USA04413

PATIENT
  Age: 38 Year
  Sex: Male

DRUGS (6)
  1. FOSAMAX [Suspect]
     Indication: OSTEOPOROSIS
     Dosage: 70 MG/WKY/PO
     Route: 048
     Dates: start: 20051103, end: 20060501
  2. FOSAMAX [Suspect]
     Indication: VITAMIN D DECREASED
     Dosage: 70 MG/WKY/PO
     Route: 048
     Dates: start: 20051103, end: 20060501
  3. FLONASE [Concomitant]
  4. WELLBUTRIN SR [Concomitant]
  5. CALCIUM (UNSPECIFIED) [Concomitant]
  6. VITAMIN D (UNSPECIFIED) [Concomitant]

REACTIONS (1)
  - OSTEONECROSIS [None]
